FAERS Safety Report 14968702 (Version 3)
Quarter: 2025Q3

REPORT INFORMATION
  Report Type: Spontaneous
  Country: US (occurrence: US)
  Receive Date: 20180604
  Receipt Date: 20250908
  Transmission Date: 20251020
  Serious: Yes (Other)
  Sender: ROCHE
  Company Number: US-MLMSERVICE-20180523-1195088-1

PATIENT
  Age: 4 Decade
  Sex: Female

DRUGS (1)
  1. MYCOPHENOLATE MOFETIL [Suspect]
     Active Substance: MYCOPHENOLATE MOFETIL
     Indication: Vasculitis
     Route: 048

REACTIONS (2)
  - Neutropenia [Recovered/Resolved]
  - Hypertransaminasaemia [Unknown]
